FAERS Safety Report 17794235 (Version 1)
Quarter: 2020Q2

REPORT INFORMATION
  Report Type: Report from Study
  Country: IT (occurrence: IT)
  Receive Date: 20200515
  Receipt Date: 20200515
  Transmission Date: 20200714
  Serious: Yes (Hospitalization)
  Sender: FDA-Public Use
  Company Number: IT-MYLANLABS-2020M1047545

PATIENT
  Age: 79 Year
  Sex: Male

DRUGS (12)
  1. OLANZAPINE. [Suspect]
     Active Substance: OLANZAPINE
     Indication: PRODUCT USED FOR UNKNOWN INDICATION
     Dosage: 1.25 MILLIGRAM, QD
     Dates: start: 20200101, end: 20200415
  2. BRIMICA GENUAIR [Concomitant]
     Active Substance: ACLIDINIUM BROMIDE\FORMOTEROL FUMARATE
  3. LEVOBREN [Interacting]
     Active Substance: LEVOSULPIRIDE
     Indication: PRODUCT USED FOR UNKNOWN INDICATION
     Dosage: 15 GTT DROPS, QD
     Route: 048
     Dates: start: 20200101, end: 20200415
  4. LORTAAN [Concomitant]
     Active Substance: LOSARTAN POTASSIUM
  5. BISOPROLOL FUMARATE. [Concomitant]
     Active Substance: BISOPROLOL FUMARATE
     Dosage: 1.25 MILLIGRAM
  6. MIRAPEXIN [Concomitant]
     Active Substance: PRAMIPEXOLE
  7. CARDURA [Concomitant]
     Active Substance: DOXAZOSIN MESYLATE
  8. HUMALOG [Concomitant]
     Active Substance: INSULIN LISPRO
  9. LASIX [Concomitant]
     Active Substance: FUROSEMIDE
  10. SONGAR [Concomitant]
     Active Substance: TRIAZOLAM
  11. ELIQUIS [Concomitant]
     Active Substance: APIXABAN
     Dosage: 2 DOSAGE FORM
  12. PANTOPRAZOLE [Interacting]
     Active Substance: PANTOPRAZOLE
     Indication: PRODUCT USED FOR UNKNOWN INDICATION
     Dosage: 20 MILLIGRAM, QD
     Dates: start: 20200101, end: 20200415

REACTIONS (2)
  - Electrocardiogram QT prolonged [Recovering/Resolving]
  - Drug interaction [Recovering/Resolving]

NARRATIVE: CASE EVENT DATE: 20200415
